FAERS Safety Report 9526427 (Version 1)
Quarter: 2013Q3

REPORT INFORMATION
  Report Type: Spontaneous
  Country: IT (occurrence: IT)
  Receive Date: 20130916
  Receipt Date: 20130916
  Transmission Date: 20140515
  Serious: Yes (Other)
  Sender: FDA-Public Use
  Company Number: IT-ACTAVISPR-2013-15793

PATIENT
  Age: 37 Year
  Sex: Male

DRUGS (3)
  1. FINASTERIDE (UNKNOWN) [Suspect]
     Indication: ALOPECIA
     Dosage: 1 MG, DAILY
     Route: 048
  2. LANSOPRAZOLE DCI [Concomitant]
     Indication: GASTROOESOPHAGEAL REFLUX DISEASE
     Dosage: 15 MG, DAILY
     Route: 048
  3. BROMAZEPAM [Concomitant]
     Indication: GENERALISED ANXIETY DISORDER
     Dosage: 2 MG, DAILY,AS NEEDED
     Route: 065

REACTIONS (1)
  - Oligospermia [Recovering/Resolving]
